FAERS Safety Report 15343874 (Version 1)
Quarter: 2018Q3

REPORT INFORMATION
  Report Type: Spontaneous
  Country: US (occurrence: US)
  Receive Date: 20180903
  Receipt Date: 20180903
  Transmission Date: 20181010
  Serious: Yes (Other)
  Sender: FDA-Public Use
  Company Number: PHHY2018US080832

PATIENT

DRUGS (1)
  1. METHOTREXATE. [Suspect]
     Active Substance: METHOTREXATE
     Indication: OSTEOSARCOMA
     Route: 065

REACTIONS (4)
  - Toxicity to various agents [Recovered/Resolved]
  - Neutropenia [Unknown]
  - Mucosal inflammation [Unknown]
  - Nephropathy toxic [Recovered/Resolved]
